FAERS Safety Report 8883896 (Version 2)
Quarter: 2014Q2

REPORT INFORMATION
  Report Type: Spontaneous
  Country: US (occurrence: US)
  Receive Date: 20121102
  Receipt Date: 20140502
  Transmission Date: 20141212
  Serious: Yes (Hospitalization, Other)
  Sender: FDA-Public Use
  Company Number: US-ASTRAZENECA-2012SE10272

PATIENT
  Age: 53 Year
  Sex: Female
  Weight: 67.1 kg

DRUGS (11)
  1. NEXIUM [Suspect]
     Indication: GASTROOESOPHAGEAL REFLUX DISEASE
     Route: 048
     Dates: start: 2001
  2. NEXIUM [Suspect]
     Indication: VARICES OESOPHAGEAL
     Route: 048
     Dates: start: 2001
  3. NEXIUM [Suspect]
     Indication: GASTROOESOPHAGEAL REFLUX DISEASE
     Dosage: QOD
     Route: 048
  4. NEXIUM [Suspect]
     Indication: VARICES OESOPHAGEAL
     Dosage: QOD
     Route: 048
  5. CRESTOR [Suspect]
     Indication: BLOOD TRIGLYCERIDES INCREASED
     Route: 048
     Dates: start: 2009
  6. CRESTOR [Suspect]
     Indication: BLOOD CHOLESTEROL INCREASED
     Route: 048
     Dates: start: 2009
  7. CRESTOR [Suspect]
     Indication: BLOOD TRIGLYCERIDES INCREASED
     Route: 048
     Dates: start: 2012
  8. CRESTOR [Suspect]
     Indication: BLOOD CHOLESTEROL INCREASED
     Route: 048
     Dates: start: 2012
  9. PROPRANOLOL [Suspect]
  10. MOBIC [Concomitant]
     Indication: OSTEOARTHRITIS
     Route: 048
     Dates: start: 1999
  11. ROCEPHIN [Concomitant]
     Dosage: NOT PROVIDED

REACTIONS (45)
  - Ligament rupture [Unknown]
  - Joint dislocation [Unknown]
  - Joint dislocation [Unknown]
  - Arthropathy [Unknown]
  - Delayed recovery from anaesthesia [Unknown]
  - Polyp [Unknown]
  - Osteoarthritis [Unknown]
  - Nephrolithiasis [Unknown]
  - Myocardial infarction [Unknown]
  - Gastrooesophageal reflux disease [Unknown]
  - Weight decreased [Unknown]
  - Weight increased [Unknown]
  - Blood cholesterol increased [Unknown]
  - Dyspepsia [Unknown]
  - Amnesia [Unknown]
  - Head titubation [Unknown]
  - Tremor [Unknown]
  - Tremor [Unknown]
  - Osteoarthritis [Unknown]
  - Sleep apnoea syndrome [Unknown]
  - Walking aid user [Unknown]
  - Intervertebral disc protrusion [Unknown]
  - Nerve injury [Unknown]
  - Hypoaesthesia [Unknown]
  - Vitamin D decreased [Unknown]
  - Osteopenia [Unknown]
  - Blood calcium decreased [Unknown]
  - Blood cholesterol decreased [Unknown]
  - Heart rate decreased [Unknown]
  - Blood pressure decreased [Unknown]
  - Pain [Unknown]
  - Diabetic neuropathy [Unknown]
  - Fibromyalgia [Unknown]
  - Muscle tightness [Unknown]
  - Pyelonephritis [Unknown]
  - Pyrexia [Unknown]
  - Urinary tract infection [Unknown]
  - Calculus urinary [Unknown]
  - Dyspepsia [Unknown]
  - Pain [Unknown]
  - Vomiting [Unknown]
  - Malaise [Unknown]
  - Gastrooesophageal reflux disease [Unknown]
  - Off label use [Unknown]
  - Drug dose omission [Unknown]
